FAERS Safety Report 9315126 (Version 1)
Quarter: 2013Q2

REPORT INFORMATION
  Report Type: Spontaneous
  Country: GB (occurrence: GB)
  Receive Date: 20130529
  Receipt Date: 20130529
  Transmission Date: 20140414
  Serious: Yes (Hospitalization, Other)
  Sender: FDA-Public Use
  Company Number: GB-JNJFOC-2006300880

PATIENT
  Age: 57 Year
  Sex: Male
  Weight: 75 kg

DRUGS (11)
  1. PARACETAMOL [Suspect]
     Route: 065
  2. PARACETAMOL [Suspect]
     Indication: PRODUCT USED FOR UNKNOWN INDICATION
     Dosage: DAILY DOSE TEXT: UNSPECIFIED
     Route: 065
  3. HUMIRA [Suspect]
     Indication: ANKYLOSING SPONDYLITIS
     Dosage: DAILY DOSE TEXT: 40 MG (FREQUENCY UNSPECIFIED)
     Route: 058
     Dates: start: 20050310, end: 20050715
  4. MELOXICAM [Concomitant]
     Dosage: DAILY DOSE TEXT: UNSPECIFIED
     Route: 065
  5. ENBREL [Concomitant]
     Dosage: DAILY DOSE TEXT: UNKNOWN
     Route: 065
     Dates: start: 20040601
  6. PARACETAMOL [Concomitant]
     Dosage: DAILY DOSE TEXT: UNKNOWN
     Route: 048
  7. AN UNKNOWN MEDICATION [Concomitant]
     Indication: ANKYLOSING SPONDYLITIS
     Dosage: DAILY DOSE TEXT: 90 MG DAILY
     Route: 048
  8. ARCOXIA [Concomitant]
     Route: 065
     Dates: start: 200511, end: 200512
  9. BRUFEN [Concomitant]
     Indication: PAIN
     Route: 065
     Dates: start: 200508, end: 200510
  10. FLUOXETINE [Concomitant]
     Route: 065
     Dates: start: 200509
  11. MORPHINE [Concomitant]
     Indication: ARTHRALGIA
     Route: 065

REACTIONS (26)
  - Depression [Unknown]
  - Bone pain [Unknown]
  - Depressed mood [Unknown]
  - Emotional distress [Not Recovered/Not Resolved]
  - Feeling hot [Unknown]
  - General physical health deterioration [Not Recovered/Not Resolved]
  - Joint range of motion decreased [Unknown]
  - Mental disorder [Unknown]
  - Emotional distress [Unknown]
  - Myalgia [Unknown]
  - Night sweats [Unknown]
  - Pain [Not Recovered/Not Resolved]
  - Arthralgia [Unknown]
  - Pelvic pain [Unknown]
  - Spinal disorder [Unknown]
  - Suicidal ideation [Unknown]
  - Malaise [Not Recovered/Not Resolved]
  - Intentional overdose [Unknown]
  - Malaise [Unknown]
  - Mental disorder [Unknown]
  - Pain [Unknown]
  - Ankylosing spondylitis [Not Recovered/Not Resolved]
  - Suicidal ideation [Unknown]
  - Suicide attempt [Unknown]
  - Withdrawal syndrome [Unknown]
  - Pain [Unknown]
